FAERS Safety Report 8561589-4 (Version None)
Quarter: 2012Q3

REPORT INFORMATION
  Report Type: 
  Country: None (occurrence: None)
  Receive Date: 20120802
  Receipt Date: 20120719
  Transmission Date: 20120928
  Serious: No
  Sender: FDA-Public Use
  Company Number: US-ASTRAZENECA-2012SE45703

PATIENT
  Age: 42 Year
  Sex: Female

DRUGS (3)
  1. ATACAND [Suspect]
     Route: 048
  2. NEXIUM [Suspect]
     Route: 048
  3. RHINOCORT [Suspect]
     Indication: SINUSITIS
     Dosage: 32 MCG, TWO SPRAYS DAILY PRN
     Route: 045
     Dates: start: 20120604

REACTIONS (4)
  - HEADACHE [None]
  - DRUG DOSE OMISSION [None]
  - PAIN [None]
  - INSOMNIA [None]
